FAERS Safety Report 4478057-1 (Version None)
Quarter: 2004Q3

REPORT INFORMATION
  Report Type: 
  Country: None (occurrence: None)
  Receive Date: 20040923
  Receipt Date: 20040528
  Transmission Date: 20050211
  Serious: No
  Sender: FDA-Public Use
  Company Number: US_0406103501

PATIENT
  Age: 78 Year
  Sex: Female

DRUGS (1)
  1. FORTEO [Suspect]

REACTIONS (8)
  - BONE DISORDER [None]
  - CHEST INJURY [None]
  - CONTUSION [None]
  - EXOSTOSIS [None]
  - LOCALISED OSTEOARTHRITIS [None]
  - OSTEITIS DEFORMANS [None]
  - ROAD TRAFFIC ACCIDENT [None]
  - SPINAL OSTEOARTHRITIS [None]
